FAERS Safety Report 18382225 (Version 4)
Quarter: 2020Q4

REPORT INFORMATION
  Report Type: Spontaneous
  Country: JP (occurrence: JP)
  Receive Date: 20201014
  Receipt Date: 20201027
  Transmission Date: 20210114
  Serious: Yes (Hospitalization, Other)
  Sender: FDA-Public Use
  Company Number: JP-009507513-2010JPN000851J

PATIENT
  Age: 8 Decade
  Sex: Female

DRUGS (28)
  1. THYRADIN S [Concomitant]
     Active Substance: LEVOTHYROXINE SODIUM
     Dosage: UNK
     Route: 048
     Dates: end: 2020
  2. CELECOXIB. [Concomitant]
     Active Substance: CELECOXIB
     Dosage: UNK
     Route: 048
     Dates: end: 2020
  3. PROPETO [Concomitant]
     Active Substance: PETROLATUM
     Dosage: UNK
     Route: 065
     Dates: end: 2020
  4. BILANOA [Concomitant]
     Active Substance: BILASTINE
     Dosage: UNK
     Route: 048
     Dates: end: 2020
  5. TSUMURA TOKISHAKUYAKUSAN EXTRACT GRANULES FOR ETHICAL USE [Concomitant]
     Dosage: UNK
     Route: 048
     Dates: end: 2020
  6. XYLOCAINE [Concomitant]
     Active Substance: LIDOCAINE HYDROCHLORIDE
     Dosage: UNK
     Route: 065
     Dates: end: 2020
  7. AZUNOL [Concomitant]
     Dosage: UNK
     Dates: end: 2020
  8. LOXOPROFEN NA [Concomitant]
     Active Substance: LOXOPROFEN SODIUM
     Dosage: UNK
     Dates: end: 2020
  9. MOSAPRIDE CITRATE HYDRATE [Concomitant]
     Active Substance: MOSAPRIDE CITRATE DIHYDRATE
     Dosage: UNK
     Route: 048
     Dates: end: 2020
  10. MAGMITT [Concomitant]
     Active Substance: MAGNESIUM OXIDE
     Dosage: UNK
     Route: 048
     Dates: end: 2020
  11. AZ (SODIUM GUALENATE) [Concomitant]
     Dosage: UNK
     Route: 048
     Dates: end: 2020
  12. NEXIUM [Concomitant]
     Active Substance: ESOMEPRAZOLE MAGNESIUM
     Dosage: UNK
     Route: 048
     Dates: end: 2020
  13. CHOCOLA A [Concomitant]
     Dosage: UNK
     Route: 048
     Dates: end: 2020
  14. GLYCERIN. [Concomitant]
     Active Substance: GLYCERIN
     Dosage: UNK
     Route: 065
     Dates: end: 2020
  15. HEMOPORISON [Concomitant]
     Dosage: UNK
     Dates: end: 2020
  16. CARBOPLATIN. [Suspect]
     Active Substance: CARBOPLATIN
     Dosage: 210 MILLIGRAM
     Route: 041
     Dates: start: 20200730, end: 20200820
  17. ALINAMIN F [Concomitant]
     Active Substance: FURSULTIAMINE HYDROCHLORIDE
     Dosage: UNK
     Route: 048
     Dates: end: 2020
  18. TRAMAL [Concomitant]
     Active Substance: TRAMADOL
     Dosage: UNK
     Route: 048
     Dates: end: 2020
  19. JUVELA N [Concomitant]
     Active Substance: TOCOPHERYL NICOTINATE, D-.ALPHA.
     Dosage: UNK
     Route: 048
     Dates: end: 2020
  20. KEYTRUDA [Suspect]
     Active Substance: PEMBROLIZUMAB
     Indication: NON-SMALL CELL LUNG CANCER
     Dosage: 200 MILLIGRAM, Q3W
     Route: 041
     Dates: start: 20190912, end: 20200514
  21. SENNOSIDE [Concomitant]
     Active Substance: SENNOSIDES
     Dosage: UNK
     Route: 048
     Dates: end: 2020
  22. TS-1 [Suspect]
     Active Substance: GIMERACIL\OTERACIL\TEGAFUR
     Indication: NON-SMALL CELL LUNG CANCER
     Dosage: 100 MILLIGRAM
     Route: 048
     Dates: start: 20200603, end: 20200625
  23. TS-1 [Suspect]
     Active Substance: GIMERACIL\OTERACIL\TEGAFUR
     Dosage: 80 MILLIGRAM
     Route: 048
     Dates: start: 20200730, end: 20200820
  24. CARBOPLATIN. [Suspect]
     Active Substance: CARBOPLATIN
     Indication: NON-SMALL CELL LUNG CANCER
     Dosage: 290 MILLIGRAM
     Route: 041
     Dates: start: 20200603, end: 20200625
  25. TOWAZUREN [Concomitant]
     Dosage: UNK
     Route: 048
     Dates: end: 2020
  26. BROTIZOLAM OD [Concomitant]
     Active Substance: BROTIZOLAM
     Dosage: UNK
     Route: 048
     Dates: end: 2020
  27. CINAL [Concomitant]
     Dosage: UNK
     Route: 048
     Dates: end: 2020
  28. DISTILLED WATER [Concomitant]
     Dosage: UNK
     Route: 065
     Dates: end: 2020

REACTIONS (6)
  - Anaemia [Recovering/Resolving]
  - Malaise [Recovering/Resolving]
  - Rash [Recovering/Resolving]
  - Febrile neutropenia [Recovering/Resolving]
  - Decreased appetite [Recovering/Resolving]
  - Pancytopenia [Recovering/Resolving]

NARRATIVE: CASE EVENT DATE: 20200716
